FAERS Safety Report 21986988 (Version 2)
Quarter: 2023Q1

REPORT INFORMATION
  Report Type: Spontaneous
  Country: JP (occurrence: JP)
  Receive Date: 20230213
  Receipt Date: 20230217
  Transmission Date: 20230418
  Serious: Yes (Death, Other)
  Sender: FDA-Public Use
  Company Number: JP-ASTELLAS-2023JP001887

PATIENT
  Age: 67 Year
  Sex: Male

DRUGS (6)
  1. XTANDI [Suspect]
     Active Substance: ENZALUTAMIDE
     Indication: Prostate cancer metastatic
     Dosage: 160 MG/DAY, UNKNOWN FREQ.
     Route: 065
  2. LEUPROLIDE ACETATE [Concomitant]
     Active Substance: LEUPROLIDE ACETATE
     Indication: Prostate cancer metastatic
     Dosage: UNK UNK, UNKNOWN FREQ.
     Route: 065
  3. DOCETAXEL [Concomitant]
     Active Substance: DOCETAXEL
     Indication: Prostate cancer metastatic
     Route: 065
  4. PREDNISOLONE [Concomitant]
     Active Substance: PREDNISOLONE
     Indication: Prostate cancer metastatic
     Dosage: 10 MG/DAY, UNKNOWN FREQ.
     Route: 065
  5. OLAPARIB [Concomitant]
     Active Substance: OLAPARIB
     Indication: Neuroendocrine carcinoma
     Dosage: 500 MG/DAY, UNKNOWN FREQ.
     Route: 065
  6. OLAPARIB [Concomitant]
     Active Substance: OLAPARIB
     Indication: Prostate cancer

REACTIONS (7)
  - Prostate cancer [Fatal]
  - Lymphadenopathy [Unknown]
  - Metastases to bone [Unknown]
  - Neuroendocrine carcinoma [Unknown]
  - BRCA1 gene mutation [Unknown]
  - Anaemia [Unknown]
  - General physical health deterioration [Unknown]
